FAERS Safety Report 4287058-8 (Version None)
Quarter: 2004Q1

REPORT INFORMATION
  Report Type: 
  Country: None (occurrence: None)
  Receive Date: 20040114
  Receipt Date: 20031013
  Transmission Date: 20041129
  Serious: Yes (Other)
  Sender: FDA-Public Use
  Company Number: 300210012

PATIENT
  Age: 7 Year
  Sex: Female

DRUGS (1)
  1. AK-PENTOLATE [Suspect]
     Dosage: 1 DROP X 1, TOPICAL
     Route: 061
     Dates: start: 20031010

REACTIONS (1)
  - EYE IRRITATION [None]
